FAERS Safety Report 13738876 (Version 1)
Quarter: 2017Q3

REPORT INFORMATION
  Report Type: Spontaneous
  Country: US (occurrence: US)
  Receive Date: 20170710
  Receipt Date: 20170710
  Transmission Date: 20171127
  Serious: Yes (Other)
  Sender: FDA-Public Use
  Company Number: US-SAOL THERAPEUTICS-2017SAO00991

PATIENT
  Age: 42 Year
  Sex: Female
  Weight: 40.36 kg

DRUGS (2)
  1. BACLOFEN. [Suspect]
     Active Substance: BACLOFEN
     Dosage: 477.2 ?G, \DAY
     Route: 037
     Dates: end: 20170606
  2. BACLOFEN. [Suspect]
     Active Substance: BACLOFEN
     Dosage: 100 ?G, \DAY
     Dates: start: 20170606

REACTIONS (2)
  - Muscle spasms [Recovered/Resolved]
  - Complication associated with device [Recovered/Resolved]

NARRATIVE: CASE EVENT DATE: 201705
